FAERS Safety Report 19791135 (Version 1)
Quarter: 2021Q3

REPORT INFORMATION
  Report Type: Other
  Country: DE (occurrence: DE)
  Receive Date: 20210906
  Receipt Date: 20210906
  Transmission Date: 20211014
  Serious: Yes (Hospitalization, Congenital Anomaly, Other)
  Sender: FDA-Public Use
  Company Number: DE-MACLEODS PHARMA UK LTD-MAC2021032549

PATIENT

DRUGS (6)
  1. QUETIAPINE. [Suspect]
     Active Substance: QUETIAPINE
     Indication: PRODUCT USED FOR UNKNOWN INDICATION
     Dosage: 200 MILLIGRAM, QD, 0. ? 40.2. GESTATIONAL WEEK, 1 {TRIMESTER}
     Route: 064
     Dates: start: 20200104
  2. QUETIAPINE. [Suspect]
     Active Substance: QUETIAPINE
     Dosage: 300 MILLIGRAM, QD, 0. ? 40.2. GESTATIONAL WEEK, 1 {TRIMESTER}
     Route: 064
     Dates: end: 20201012
  3. BOOSTRIX [Concomitant]
     Active Substance: TETANUS TOXOID, REDUCED DIPHTHERIA TOXOID AND ACELLULAR PERTUSSIS VACCINE, ADSORBED ANTIGENS
     Indication: PRODUCT USED FOR UNKNOWN INDICATION
     Dosage: UNK (32.5. ? 32.5. GESTATIONAL WEEK), 3 {TRIMESTER}
     Route: 064
     Dates: start: 20200820, end: 20200820
  4. FOLSAURE [Concomitant]
     Active Substance: FOLIC ACID
     Indication: PRODUCT USED FOR UNKNOWN INDICATION
     Dosage: UNK (0. ? 35.4. GESTATIONAL WEEK), 1 {TRIMESTER}
     Route: 064
     Dates: start: 20200104, end: 20200909
  5. OMEPRAZOL [Concomitant]
     Active Substance: OMEPRAZOLE
     Indication: PRODUCT USED FOR UNKNOWN INDICATION
     Dosage: 20 MILLIGRAM, QD (TRIMESTER: 1ST + 3RD), 1 {TRIMESTER}
     Route: 064
  6. ESCITALOPRAM [Suspect]
     Active Substance: ESCITALOPRAM OXALATE
     Indication: PRODUCT USED FOR UNKNOWN INDICATION
     Dosage: 10 MILLIGRAM, QD (0. ? 29.3. GESTATIONAL WEEK), 1 {TRIMESTER}
     Route: 064

REACTIONS (2)
  - Cleft lip and palate [Recovered/Resolved]
  - Foetal exposure during pregnancy [Unknown]
